FAERS Safety Report 10765206 (Version 1)
Quarter: 2015Q1

REPORT INFORMATION
  Report Type: Spontaneous
  Country: KR (occurrence: None)
  Receive Date: 20150203
  Receipt Date: 20150203
  Transmission Date: 20150721
  Serious: Yes (Hospitalization)
  Sender: FDA-Public Use
  Company Number: KR-2015VAL000084

PATIENT
  Age: 14 Year
  Sex: Female
  Weight: 45 kg

DRUGS (1)
  1. CARBAMAZEPINE (CARBAMAZEPINE) UNKNOWN, 300MG [Suspect]
     Active Substance: CARBAMAZEPINE
     Indication: PRODUCT USED FOR UNKNOWN INDICATION
     Dosage: 9000 MG, SINGLE, ORAL
     Route: 048

REACTIONS (5)
  - Cardiac arrest [None]
  - Continuous haemodiafiltration [None]
  - Toxicity to various agents [None]
  - Generalised tonic-clonic seizure [None]
  - Intentional overdose [None]
